FAERS Safety Report 4662533-2 (Version None)
Quarter: 2005Q2

REPORT INFORMATION
  Report Type: 
  Country: None (occurrence: None)
  Receive Date: 20050512
  Receipt Date: 20050502
  Transmission Date: 20051028
  Serious: Yes (Death, Hospitalization, Other)
  Sender: FDA-Public Use
  Company Number: 2002056597

PATIENT
  Age: 54 Year
  Sex: Male

DRUGS (8)
  1. PREDNISONE [Suspect]
     Indication: RHEUMATOID ARTHRITIS
     Dosage: ORAL
     Route: 048
     Dates: start: 20010306, end: 20010501
  2. METHYLPREDNISOLONE ACETATE [Suspect]
     Indication: RHEUMATOID ARTHRITIS
     Dosage: 120 MG (CYCLIC), INTRAMUSCULAR
     Route: 030
     Dates: start: 20000321, end: 20011227
  3. HYDROCORTISONE ACETATE [Suspect]
     Indication: ILL-DEFINED DISORDER
     Dosage: INTRAVENOUS
     Route: 042
     Dates: start: 20011101, end: 20011101
  4. LEFLUNOMIDE [Suspect]
     Indication: RHEUMATOID ARTHRITIS
     Dosage: 20 MG (1D), ORAL
     Route: 048
     Dates: start: 20011029, end: 20020101
  5. GOLD (GOLD) [Suspect]
     Indication: ILL-DEFINED DISORDER
     Dosage: INTRAMUSCULAR
     Route: 030
     Dates: start: 20020101, end: 20020201
  6. ARTHROTEC (CICLOFENAC SODIUM, MISOPROSTOL) [Concomitant]
  7. PANADEINE CO (PARACETAMOL) [Concomitant]
  8. PARAMOL-118 (PARACETAMOL, DIHYDROCODEINE BITARTRATE) [Concomitant]

REACTIONS (14)
  - ASPERGILLOSIS [None]
  - CHEST PAIN [None]
  - CHEST WALL PAIN [None]
  - CLUBBING [None]
  - CONDITION AGGRAVATED [None]
  - DRUG INEFFECTIVE [None]
  - JOINT STIFFNESS [None]
  - MUSCULOSKELETAL STIFFNESS [None]
  - NAIL BED BLEEDING [None]
  - PNEUMONIA PRIMARY ATYPICAL [None]
  - RED BLOOD CELL SEDIMENTATION RATE INCREASED [None]
  - RHEUMATOID ARTHRITIS [None]
  - SEPSIS [None]
  - SPLINTER HAEMORRHAGES [None]
